FAERS Safety Report 23331513 (Version 1)
Quarter: 2023Q4

REPORT INFORMATION
  Report Type: Spontaneous
  Country: CA (occurrence: CA)
  Receive Date: 20231222
  Receipt Date: 20231222
  Transmission Date: 20240109
  Serious: Yes (Disabling, Other)
  Sender: FDA-Public Use
  Company Number: CA-GLAXOSMITHKLINE-CA2023176778

PATIENT

DRUGS (1)
  1. FLUTICASONE FUROATE [Suspect]
     Active Substance: FLUTICASONE FUROATE
     Indication: Infection prophylaxis
     Dosage: 1 PUFF(S), QD,2 PUFFS IN EACH NOSTRIL ONCE DAILY AT BEDTIME

REACTIONS (15)
  - Visual impairment [Unknown]
  - Cataract [Recovered/Resolved]
  - Eye haemorrhage [Recovering/Resolving]
  - Weight increased [Recovering/Resolving]
  - Wound [Recovering/Resolving]
  - Skin atrophy [Recovering/Resolving]
  - Cardiac disorder [Recovering/Resolving]
  - Hot flush [Recovering/Resolving]
  - Blood pressure increased [Recovering/Resolving]
  - Peripheral swelling [Recovering/Resolving]
  - Headache [Recovering/Resolving]
  - Vomiting [Recovered/Resolved]
  - Mobility decreased [Recovered/Resolved]
  - Alopecia [Unknown]
  - Product use in unapproved indication [Unknown]
